FAERS Safety Report 5750375-6 (Version None)
Quarter: 2008Q2

REPORT INFORMATION
  Report Type: 
  Country: None (occurrence: None)
  Receive Date: 20080523
  Receipt Date: 20080523
  Transmission Date: 20081010
  Serious: Yes (Other)
  Sender: FDA-Public Use
  Company Number: None

PATIENT
  Age: 54 Year
  Sex: Female
  Weight: 68.0396 kg

DRUGS (1)
  1. REMICADE [Suspect]
     Indication: CROHN'S DISEASE
     Dosage: EVERY 2 MONTHS IV
     Route: 042
     Dates: start: 20060401, end: 20060801

REACTIONS (5)
  - DEMYELINATION [None]
  - HYPOAESTHESIA [None]
  - NUCLEAR MAGNETIC RESONANCE IMAGING BRAIN ABNORMAL [None]
  - PLATELET COUNT DECREASED [None]
  - RHEUMATOID ARTHRITIS [None]
